FAERS Safety Report 15321785 (Version 1)
Quarter: 2018Q3

REPORT INFORMATION
  Report Type: Spontaneous
  Country: BE (occurrence: BE)
  Receive Date: 20180827
  Receipt Date: 20180827
  Transmission Date: 20181010
  Serious: Yes (Other)
  Sender: FDA-Public Use
  Company Number: BE-ABBVIE-18P-013-2464668-00

PATIENT
  Age: 43 Year
  Sex: Male

DRUGS (9)
  1. PROPOFOL. [Concomitant]
     Active Substance: PROPOFOL
     Indication: SEDATION
     Route: 042
  2. MIDAZOLAM [Concomitant]
     Active Substance: MIDAZOLAM HYDROCHLORIDE
     Indication: SEDATION
     Route: 042
  3. KETAMINE [Concomitant]
     Active Substance: KETAMINE
     Indication: SEDATION
     Route: 042
  4. CLONIDINE. [Concomitant]
     Active Substance: CLONIDINE
     Indication: SEDATION
     Route: 042
  5. CLONIDINE. [Concomitant]
     Active Substance: CLONIDINE
     Route: 042
  6. PROPOFOL. [Concomitant]
     Active Substance: PROPOFOL
     Dosage: 1?1.5MG/KG/H
  7. SEVOFLURANE. [Suspect]
     Active Substance: SEVOFLURANE
     Indication: SEDATION
     Dosage: END?TIDAL CONCENTRATION OF 1% VOL AND INJECTION RATE OF 1014 ML/H
     Route: 055
  8. OSELTAMIVIR [Concomitant]
     Active Substance: OSELTAMIVIR
     Indication: ANTIVIRAL TREATMENT
  9. SUFENTANIL [Concomitant]
     Active Substance: SUFENTANIL
     Indication: SEDATION
     Dosage: UP TO 15 MCG/HR
     Route: 042

REACTIONS (1)
  - Nephrogenic diabetes insipidus [Recovered/Resolved]
